FAERS Safety Report 18751306 (Version 3)
Quarter: 2021Q1

REPORT INFORMATION
  Report Type: Report from Study
  Country: US (occurrence: US)
  Receive Date: 20210118
  Receipt Date: 20210319
  Transmission Date: 20210419
  Serious: Yes (Hospitalization, Other)
  Sender: FDA-Public Use
  Company Number: US-GILEAD-2021-0513286

PATIENT
  Age: 53 Year
  Sex: Female

DRUGS (3)
  1. UPTRAVI [Suspect]
     Active Substance: SELEXIPAG
     Indication: PULMONARY HYPERTENSION
     Dosage: 0.4 MG, QD
     Route: 065
     Dates: start: 20210116
  2. AMBRISENTAN [Suspect]
     Active Substance: AMBRISENTAN
     Indication: PULMONARY HYPERTENSION
     Dosage: 10 MG, QD
     Route: 065
     Dates: start: 20210116
  3. UPTRAVI [Suspect]
     Active Substance: SELEXIPAG
     Dosage: 1 MG, QD
     Route: 065
     Dates: start: 20210116

REACTIONS (5)
  - Pneumonia [Unknown]
  - Headache [Not Recovered/Not Resolved]
  - Flatulence [Unknown]
  - Bone pain [Unknown]
  - Paraesthesia [Unknown]
